FAERS Safety Report 8290141-3 (Version None)
Quarter: 2012Q1

REPORT INFORMATION
  Report Type: 
  Country: None (occurrence: None)
  Receive Date: 20120316
  Receipt Date: 20090105
  Transmission Date: 20120608
  Serious: Yes (Life-Threatening)
  Sender: FDA-Public Use
  Company Number: PHEH2009US00457

PATIENT
  Age: 68 Year
  Sex: Male
  Weight: 72.6 kg

DRUGS (3)
  1. VERAPAMIL [Concomitant]
  2. TEKTURNA [Suspect]
     Indication: HYPERTENSION
     Dosage: 150 MG, ONCE/SINGLE, ORAL
     Route: 048
     Dates: start: 20081101, end: 20081101
  3. DIOVAN HCT [Concomitant]

REACTIONS (1)
  - HYPERTENSION [None]
